FAERS Safety Report 6616472-8 (Version None)
Quarter: 2010Q1

REPORT INFORMATION
  Report Type: 
  Country: None (occurrence: None)
  Receive Date: 20100305
  Receipt Date: 20100222
  Transmission Date: 20100710
  Serious: Yes (Other)
  Sender: FDA-Public Use
  Company Number: AU-PFIZER INC-2010022966

PATIENT
  Age: 30 Year
  Sex: Female

DRUGS (1)
  1. ZOLOFT [Suspect]
     Indication: DEPRESSION
     Dosage: 200 MG FOR POSSIBLY THE PAST 6 MONTHS

REACTIONS (15)
  - ALLERGY TO CHEMICALS [None]
  - ANGIOEDEMA [None]
  - FATIGUE [None]
  - FOOD ALLERGY [None]
  - HOT FLUSH [None]
  - INSOMNIA [None]
  - LIP SWELLING [None]
  - MALAISE [None]
  - MENSTRUATION IRREGULAR [None]
  - RASH [None]
  - SEXUAL DYSFUNCTION [None]
  - SWELLING FACE [None]
  - SWOLLEN TONGUE [None]
  - URTICARIA [None]
  - WEIGHT INCREASED [None]
